FAERS Safety Report 17453654 (Version 1)
Quarter: 2020Q1

REPORT INFORMATION
  Report Type: Spontaneous
  Country: US (occurrence: US)
  Receive Date: 20200224
  Receipt Date: 20200224
  Transmission Date: 20200409
  Serious: No
  Sender: FDA-Public Use
  Company Number: US-VYERA PHARMACEUTICALS, LLC-2019VYE00035

PATIENT
  Sex: Male

DRUGS (3)
  1. DARAPRIM [Suspect]
     Active Substance: PYRIMETHAMINE
     Indication: TOXOPLASMOSIS
     Dosage: 12.5 MG, 1X/DAY IN THE AM
     Route: 048
     Dates: start: 20190723, end: 20190726
  2. DARAPRIM [Suspect]
     Active Substance: PYRIMETHAMINE
     Dosage: 6.25 MG, 1X/DAY IN THE PM
     Route: 048
     Dates: start: 20190723, end: 20190726
  3. DARAPRIM [Suspect]
     Active Substance: PYRIMETHAMINE
     Dosage: 12.5 MG, 1X/DAY
     Route: 048
     Dates: start: 20190727

REACTIONS (1)
  - Pyrexia [Recovered/Resolved]
